FAERS Safety Report 23894786 (Version 2)
Quarter: 2024Q2

REPORT INFORMATION
  Report Type: Spontaneous
  Country: AU (occurrence: AU)
  Receive Date: 20240524
  Receipt Date: 20240531
  Transmission Date: 20240716
  Serious: Yes (Other)
  Sender: FDA-Public Use
  Company Number: None

PATIENT
  Age: 29 Year
  Sex: Female

DRUGS (8)
  1. BETAMETHASONE [Suspect]
     Active Substance: BETAMETHASONE\BETAMETHASONE DIPROPIONATE
     Indication: Labour pain
     Dosage: 11.4 MILLIGRAM
     Route: 048
  2. BETAMETHASONE [Suspect]
     Active Substance: BETAMETHASONE\BETAMETHASONE DIPROPIONATE
     Indication: Spontaneous rupture of membranes
  3. BETAMETHASONE [Suspect]
     Active Substance: BETAMETHASONE\BETAMETHASONE DIPROPIONATE
     Indication: Haemorrhage in pregnancy
  4. STERILE WATER [Concomitant]
     Active Substance: WATER
     Indication: Labour pain
     Dosage: 2 INTRADERMAL (INTRACUTANEOUS) INJECTIONS WERE ADMINISTERED INTO 2 LOCATIONS (ON THE LEFT AND RIGHT
     Route: 023
  5. ONDANSETRON [Concomitant]
     Active Substance: ONDANSETRON
  6. MORPHINE [Concomitant]
     Active Substance: MORPHINE
  7. NIFEDIPINE [Concomitant]
     Active Substance: NIFEDIPINE
  8. ALBUTEROL [Concomitant]
     Active Substance: ALBUTEROL

REACTIONS (6)
  - Caesarean section [Unknown]
  - Labour pain [Unknown]
  - Premature delivery [Unknown]
  - Maternal exposure during pregnancy [Unknown]
  - Product use in unapproved indication [Unknown]
  - Drug ineffective for unapproved indication [Unknown]
